FAERS Safety Report 7622409-5 (Version None)
Quarter: 2011Q3

REPORT INFORMATION
  Report Type: 
  Country: None (occurrence: None)
  Receive Date: 20110718
  Receipt Date: 20110718
  Transmission Date: 20111222
  Serious: Yes (Other)
  Sender: FDA-Public Use
  Company Number: None

PATIENT
  Sex: Male

DRUGS (1)
  1. ALIGN CAPS 28'S-4MG PROCTOR AND GAMBLE [Suspect]

REACTIONS (3)
  - COUGH [None]
  - CHOKING [None]
  - CAPSULE PHYSICAL ISSUE [None]
